FAERS Safety Report 6305298-0 (Version None)
Quarter: 2009Q3

REPORT INFORMATION
  Report Type: 
  Country: None (occurrence: None)
  Receive Date: 20090807
  Receipt Date: 20090724
  Transmission Date: 20100115
  Serious: Yes (Hospitalization)
  Sender: FDA-Public Use
  Company Number: 1000005950

PATIENT
  Age: 78 Year
  Sex: Female

DRUGS (6)
  1. MEMANTINE HCL [Suspect]
     Indication: DEMENTIA ALZHEIMER'S TYPE
     Dosage: 20 MG (10 MG,2 IN 1 D),ORAL
     Route: 048
     Dates: end: 20081115
  2. EQUANIL [Suspect]
     Dosage: 400 MG (400 MG,1 IN 1 D),ORAL
     Route: 048
  3. NOCTRAN(TABLETS) [Suspect]
     Indication: INSOMNIA
     Dosage: 15 MG (15 MG,1 IN 1 D),ORAL
     Route: 048
     Dates: end: 20081115
  4. REMINYL(TABLETS) [Suspect]
     Indication: DEMENTIA ALZHEIMER'S TYPE
     Dosage: 24 MG (8 MG,3 IN 1 D),ORAL
     Route: 048
     Dates: end: 20081115
  5. CETORNAN [Suspect]
     Dosage: 2 DOSAGE FORMS (2 DOSAGE FORMS,1 IN 1 D),ORAL
     Route: 048
     Dates: end: 20081115
  6. POTASSIUM GLUCONATE TAB [Suspect]
     Dosage: 1 DOSAGE FORMS (1 DOSAGE FORMS,1 IN 1 D),ORAL
     Route: 048
     Dates: end: 20081115

REACTIONS (6)
  - GRAND MAL CONVULSION [None]
  - HYPOTONIA [None]
  - INCOHERENT [None]
  - LOSS OF CONSCIOUSNESS [None]
  - MALAISE [None]
  - SPEECH DISORDER [None]
